FAERS Safety Report 9320906 (Version 1)
Quarter: 2013Q2

REPORT INFORMATION
  Report Type: Report from Study
  Country: MX (occurrence: MX)
  Receive Date: 20130531
  Receipt Date: 20130531
  Transmission Date: 20140414
  Serious: Yes (Hospitalization, Other)
  Sender: FDA-Public Use
  Company Number: PHHY2013MX048315

PATIENT
  Age: 83 Year
  Sex: Female

DRUGS (5)
  1. DIOVAN [Suspect]
     Indication: HYPERTENSION
     Dosage: 1 DF, (80 MG VALS) DAILY
     Route: 048
     Dates: start: 200905, end: 201205
  2. DIOVAN [Suspect]
     Dosage: 2 DF (80 MG) DAILY
     Route: 048
     Dates: start: 201205
  3. LOSARTAN [Suspect]
  4. AMLODIPINE [Concomitant]
     Dosage: UNK UKN, UNK
  5. ENALAPRIL [Concomitant]
     Dosage: UNK UKN, UNK

REACTIONS (7)
  - General physical health deterioration [Not Recovered/Not Resolved]
  - Maculopathy [Not Recovered/Not Resolved]
  - Malaise [Unknown]
  - Vomiting [Not Recovered/Not Resolved]
  - Headache [Not Recovered/Not Resolved]
  - Nausea [Not Recovered/Not Resolved]
  - Dizziness [Not Recovered/Not Resolved]
